FAERS Safety Report 21211562 (Version 3)
Quarter: 2022Q4

REPORT INFORMATION
  Report Type: Report from Study
  Country: DE (occurrence: DE)
  Receive Date: 20220815
  Receipt Date: 20221019
  Transmission Date: 20230113
  Serious: Yes (Hospitalization, Other)
  Sender: FDA-Public Use
  Company Number: DE-MYLANLABS-2022M1084936

PATIENT
  Sex: Female

DRUGS (18)
  1. METHOTREXATE [Suspect]
     Active Substance: METHOTREXATE
     Indication: Rheumatoid arthritis
     Dosage: 20 MILLIGRAM
     Route: 065
     Dates: start: 20161125
  2. METHOTREXATE [Suspect]
     Active Substance: METHOTREXATE
     Dosage: 20 MILLIGRAM
     Route: 065
     Dates: start: 20170203
  3. METHOTREXATE [Suspect]
     Active Substance: METHOTREXATE
     Dosage: 20 MILLIGRAM
     Route: 065
     Dates: start: 20170513
  4. METHOTREXATE [Suspect]
     Active Substance: METHOTREXATE
     Dosage: 20 MILLIGRAM
     Route: 065
     Dates: start: 20170519
  5. METHOTREXATE [Suspect]
     Active Substance: METHOTREXATE
     Dosage: 20 MILLIGRAM
     Route: 065
     Dates: start: 20171122
  6. METHOTREXATE [Suspect]
     Active Substance: METHOTREXATE
     Dosage: 20 MILLIGRAM
     Route: 065
     Dates: start: 20180529
  7. METHOTREXATE [Suspect]
     Active Substance: METHOTREXATE
     Dosage: 15 MILLIGRAM
     Route: 065
     Dates: start: 20181129
  8. METHOTREXATE [Suspect]
     Active Substance: METHOTREXATE
     Dosage: 15 MILLIGRAM
     Route: 065
     Dates: start: 20190527
  9. METHOTREXATE [Suspect]
     Active Substance: METHOTREXATE
     Dosage: 15 MILLIGRAM
     Route: 065
     Dates: start: 20191001
  10. METHOTREXATE [Suspect]
     Active Substance: METHOTREXATE
     Dosage: 15 MILLIGRAM
     Route: 065
     Dates: start: 20200428
  11. METHOTREXATE [Suspect]
     Active Substance: METHOTREXATE
     Dosage: 15 MILLIGRAM
     Route: 065
     Dates: start: 20201013
  12. METHOTREXATE [Suspect]
     Active Substance: METHOTREXATE
     Dosage: 15 MILLIGRAM
     Route: 065
     Dates: start: 20210413
  13. METHOTREXATE [Suspect]
     Active Substance: METHOTREXATE
     Dosage: 15 MILLIGRAM
     Route: 065
     Dates: start: 20211019
  14. LEFLUNOMIDE [Suspect]
     Active Substance: LEFLUNOMIDE
     Indication: Rheumatoid arthritis
     Dosage: 10 MILLIGRAM
     Route: 065
     Dates: start: 20161125
  15. LEFLUNOMIDE [Suspect]
     Active Substance: LEFLUNOMIDE
     Dosage: 10 MILLIGRAM
     Route: 065
     Dates: start: 20170203
  16. LEFLUNOMIDE [Suspect]
     Active Substance: LEFLUNOMIDE
     Dosage: 10 MILLIGRAM
     Route: 065
     Dates: start: 20191001
  17. LEFLUNOMIDE [Suspect]
     Active Substance: LEFLUNOMIDE
     Dosage: 20 MILLIGRAM
     Route: 065
     Dates: start: 20191001
  18. SULFASALAZINE [Suspect]
     Active Substance: SULFASALAZINE
     Indication: Rheumatoid arthritis
     Dosage: 2000 MILLIGRAM, (START DATE 19-OCT-2021)
     Route: 065

REACTIONS (27)
  - Rotator cuff syndrome [Not Recovered/Not Resolved]
  - Synovitis [Not Recovered/Not Resolved]
  - Intervertebral disc degeneration [Recovered/Resolved]
  - Vertebral foraminal stenosis [Recovered/Resolved]
  - Carpal tunnel syndrome [Recovered/Resolved]
  - Rheumatoid arthritis [Recovered/Resolved]
  - Back pain [Not Recovered/Not Resolved]
  - Rib fracture [Unknown]
  - Fall [Unknown]
  - Influenza like illness [Recovered/Resolved]
  - Urinary tract infection [Recovered/Resolved]
  - Gastroenteritis [Recovered/Resolved]
  - Oral herpes [Unknown]
  - Rhinitis [Unknown]
  - Nasal herpes [Recovered/Resolved]
  - Nasopharyngitis [Recovered/Resolved]
  - Vitreous opacities [Unknown]
  - Tenosynovitis stenosans [Recovered/Resolved]
  - Abdominal discomfort [Unknown]
  - Sinusitis [Recovered/Resolved]
  - Gastrointestinal infection [Recovered/Resolved]
  - Transaminases increased [Recovered/Resolved]
  - Weight decreased [Not Recovered/Not Resolved]
  - Nausea [Not Recovered/Not Resolved]
  - Alopecia [Not Recovered/Not Resolved]
  - Decreased appetite [Not Recovered/Not Resolved]
  - Dyspepsia [Unknown]

NARRATIVE: CASE EVENT DATE: 20170317
